FAERS Safety Report 8477683-2 (Version None)
Quarter: 2012Q2

REPORT INFORMATION
  Report Type: 
  Country: None (occurrence: None)
  Receive Date: 20120629
  Receipt Date: 20120618
  Transmission Date: 20120825
  Serious: Yes (Other)
  Sender: FDA-Public Use
  Company Number: US-VERTEX PHARMACEUTICALS INC.-AE-2012-009079

PATIENT
  Sex: Male
  Weight: 81.72 kg

DRUGS (7)
  1. IBUPROFEN [Concomitant]
  2. RIBASPHERE [Concomitant]
     Indication: HEPATITIS C
  3. PEGASYS [Concomitant]
     Indication: HEPATITIS C
  4. AMLODIPINE [Concomitant]
  5. INCIVEK [Suspect]
     Indication: HEPATITIS C
     Route: 048
  6. ASPIRIN [Concomitant]
  7. LISINOPRIL [Concomitant]

REACTIONS (4)
  - LOSS OF CONSCIOUSNESS [None]
  - COUGH [None]
  - INFLUENZA LIKE ILLNESS [None]
  - RHINORRHOEA [None]
